FAERS Safety Report 6384977-3 (Version None)
Quarter: 2009Q4

REPORT INFORMATION
  Report Type: 
  Country: None (occurrence: None)
  Receive Date: 20091002
  Receipt Date: 20090928
  Transmission Date: 20100525
  Serious: Yes (Hospitalization)
  Sender: FDA-Public Use
  Company Number: FR-ROCHE-655791

PATIENT
  Sex: Female
  Weight: 69 kg

DRUGS (7)
  1. INTERFERON ALFA [Suspect]
     Route: 058
     Dates: start: 20090217, end: 20090519
  2. BEVACIZUMAB [Suspect]
     Dosage: FREQUENCY: EVERY OTHER WEEK
     Route: 042
     Dates: start: 20090217, end: 20090519
  3. SUTENT [Suspect]
     Route: 065
     Dates: start: 20090102
  4. ZOFENIL [Concomitant]
     Dates: start: 20000101
  5. PARACETAMOL [Concomitant]
     Dates: start: 20090401
  6. CALCIPRAT [Concomitant]
     Indication: OSTEOPOROSIS
     Dates: start: 19980101
  7. LEVOTHYROXINE SODIUM [Concomitant]
     Indication: HYPOTHYROIDISM

REACTIONS (2)
  - PRESYNCOPE [None]
  - TRANSIENT ISCHAEMIC ATTACK [None]
